FAERS Safety Report 7186466-5 (Version None)
Quarter: 2010Q4

REPORT INFORMATION
  Report Type: 
  Country: None (occurrence: None)
  Receive Date: 20101222
  Receipt Date: 20101213
  Transmission Date: 20110411
  Serious: Yes (Death)
  Sender: FDA-Public Use
  Company Number: AU-BAXTER-2010BH030131

PATIENT
  Age: 63 Year
  Sex: Male

DRUGS (4)
  1. DEXTROSE 10% [Suspect]
     Indication: MEDICAL DIET
     Route: 042
  2. DIANEAL [Suspect]
     Indication: PERITONEAL DIALYSIS
     Route: 033
  3. CLINOLEIC 20% [Suspect]
     Indication: MEDICAL DIET
     Route: 042
  4. TRAVASOL 10% W/ ELECTROLYTES [Suspect]
     Indication: MEDICAL DIET
     Route: 042

REACTIONS (1)
  - DEATH [None]
